FAERS Safety Report 5474586-2 (Version None)
Quarter: 2007Q3

REPORT INFORMATION
  Report Type: 
  Country: None (occurrence: None)
  Receive Date: 20070831
  Receipt Date: 20070424
  Transmission Date: 20080115
  Serious: No
  Sender: FDA-Public Use
  Company Number: 236169

PATIENT
  Age: 86 Year
  Sex: Female

DRUGS (4)
  1. LUCENTIS [Suspect]
     Indication: MACULAR DEGENERATION
     Dosage: 5 ML, INTRAVITREAL;  SINGLE, INTRAVITREAL
     Dates: start: 20060901
  2. LUCENTIS [Suspect]
     Indication: MACULAR DEGENERATION
     Dosage: 5 ML, INTRAVITREAL;  SINGLE, INTRAVITREAL
     Dates: start: 20070117
  3. MULTIPLE VITAMINS (MULTIVITAMINS NOS) [Concomitant]
  4. BUFFERIN [Concomitant]

REACTIONS (3)
  - HYPERSENSITIVITY [None]
  - PAIN [None]
  - VISUAL DISTURBANCE [None]
